FAERS Safety Report 18903528 (Version 1)
Quarter: 2021Q1

REPORT INFORMATION
  Report Type: Spontaneous
  Country: US (occurrence: US)
  Receive Date: 20210216
  Receipt Date: 20210216
  Transmission Date: 20210420
  Serious: Yes (Hospitalization)
  Sender: FDA-Public Use
  Company Number: None

PATIENT
  Age: 65 Year
  Sex: Female

DRUGS (12)
  1. PANTOPRAZOLE 40MG [Concomitant]
     Active Substance: PANTOPRAZOLE SODIUM
     Dates: start: 20201005
  2. ONDANSETRON 8MG [Concomitant]
     Active Substance: ONDANSETRON
     Dates: start: 20210204
  3. HUMIRA [Suspect]
     Active Substance: ADALIMUMAB
     Indication: CROHN^S DISEASE
     Dosage: ?          OTHER FREQUENCY:EVERY OTHER WEEK;?
     Route: 058
  4. ZOLPIDEM [Concomitant]
     Active Substance: ZOLPIDEM TARTRATE
     Dates: start: 20201005
  5. METOPROLOL SUCCINATE 50MG [Concomitant]
     Active Substance: METOPROLOL SUCCINATE
     Dates: start: 20200705
  6. ALBUTEROL HFA [Concomitant]
     Active Substance: ALBUTEROL SULFATE
     Dates: start: 20201013
  7. DAILY?VITE [Concomitant]
     Dates: start: 20201005
  8. PREDNISONE 10MG [Concomitant]
     Active Substance: PREDNISONE
     Dates: start: 20201005
  9. METOPROLOL TARTRATE 50MG [Concomitant]
     Active Substance: METOPROLOL TARTRATE
     Dates: start: 20201005
  10. MESALAMINE 1.2GM [Concomitant]
     Active Substance: MESALAMINE
     Dates: start: 20201005
  11. DOXEPIN 10MG [Concomitant]
     Dates: start: 20201005
  12. SERTRALINE 50MG [Concomitant]
     Active Substance: SERTRALINE HYDROCHLORIDE
     Dates: start: 20201005

REACTIONS (1)
  - Hospitalisation [None]

NARRATIVE: CASE EVENT DATE: 20210201
